FAERS Safety Report 16528399 (Version 1)
Quarter: 2019Q3

REPORT INFORMATION
  Report Type: Spontaneous
  Country: US (occurrence: US)
  Receive Date: 20190704
  Receipt Date: 20190704
  Transmission Date: 20191004
  Serious: No
  Sender: FDA-Public Use
  Company Number: US-GW PHARMA-201905USGW1294

PATIENT

DRUGS (3)
  1. ONFI [Suspect]
     Active Substance: CLOBAZAM
     Indication: PRODUCT USED FOR UNKNOWN INDICATION
     Dosage: WOULD DISCONTINUE IN 30 DAYS
     Route: 065
  2. EPIDIOLEX [Suspect]
     Active Substance: CANNABIDIOL
     Dosage: 260 MILLIGRAM, BID
     Route: 048
     Dates: start: 2019
  3. EPIDIOLEX [Suspect]
     Active Substance: CANNABIDIOL
     Indication: LENNOX-GASTAUT SYNDROME
     Dosage: 140 MILLIGRAM, BID
     Route: 048
     Dates: start: 20190321, end: 2019

REACTIONS (1)
  - Sensory disturbance [Unknown]

NARRATIVE: CASE EVENT DATE: 20190416
